FAERS Safety Report 16648340 (Version 1)
Quarter: 2019Q3

REPORT INFORMATION
  Report Type: Spontaneous
  Country: RU (occurrence: RU)
  Receive Date: 20190730
  Receipt Date: 20190730
  Transmission Date: 20191004
  Serious: Yes (Other)
  Sender: FDA-Public Use
  Company Number: RU-JNJFOC-20190730646

PATIENT
  Age: 72 Year
  Sex: Female

DRUGS (3)
  1. STATIN                             /00036501/ [Concomitant]
     Active Substance: NYSTATIN
     Indication: HYPERLIPIDAEMIA
     Dosage: UNK
  2. XARELTO [Suspect]
     Active Substance: RIVAROXABAN
     Indication: HIP ARTHROPLASTY
     Dosage: 20 MG, QD
     Route: 048
  3. STATIN                             /00036501/ [Concomitant]
     Active Substance: NYSTATIN
     Indication: OBESITY

REACTIONS (3)
  - Oedema peripheral [Unknown]
  - Thrombosis [Unknown]
  - Off label use [Unknown]

NARRATIVE: CASE EVENT DATE: 2019
